FAERS Safety Report 9450444 (Version 1)
Quarter: 2013Q3

REPORT INFORMATION
  Report Type: Spontaneous
  Country: US (occurrence: US)
  Receive Date: 20130809
  Receipt Date: 20130809
  Transmission Date: 20140515
  Serious: No
  Sender: FDA-Public Use
  Company Number: US-009507513-1308USA000759

PATIENT
  Age: 64 Year
  Sex: Female

DRUGS (10)
  1. FARESTON [Suspect]
     Indication: BREAST CANCER METASTATIC
     Dosage: 60 MG, QD
     Route: 048
     Dates: start: 201202
  2. METOPROLOL [Concomitant]
     Dosage: 25 MG, QD
     Route: 065
  3. OXYCONTIN [Concomitant]
     Dosage: 15 MG, UNK
     Route: 065
  4. NEXIUM [Concomitant]
     Dosage: 40 MG, QD
     Route: 065
  5. TRANXENE [Concomitant]
     Dosage: 7.5 MG, QD
     Route: 065
  6. ALDACTONE TABLETS [Concomitant]
     Dosage: 25 MG, QD
     Route: 065
  7. MIRALAX [Concomitant]
     Dosage: UNK, PRN
     Route: 065
  8. CALCIUM CITRATE (+) CHOLECALCIFEROL [Concomitant]
     Route: 065
  9. ALEVE [Concomitant]
     Dosage: UNK, PRN
     Route: 065
  10. VITAMINS (UNSPECIFIED) [Concomitant]
     Dosage: UNK, QD
     Route: 065

REACTIONS (2)
  - Skin burning sensation [Not Recovered/Not Resolved]
  - Hyperhidrosis [Not Recovered/Not Resolved]
